FAERS Safety Report 6178686-3 (Version None)
Quarter: 2009Q2

REPORT INFORMATION
  Report Type: 
  Country: None (occurrence: None)
  Receive Date: 20090504
  Receipt Date: 20081017
  Transmission Date: 20091009
  Serious: No
  Sender: FDA-Public Use
  Company Number: US-ALEXION-A200800287

PATIENT

DRUGS (8)
  1. SOLIRIS [Suspect]
     Route: 042
     Dates: start: 20071001, end: 20071001
  2. CAPTOPRIL [Concomitant]
     Indication: BLOOD PRESSURE
     Dosage: 25 MG, QD
     Route: 048
  3. WARFARIN SODIUM [Concomitant]
     Indication: ANTICOAGULANT THERAPY
     Dosage: 3 MG, 1 TAB QD X 2D, THEN 1.5 TAB FOR 1D, REPEAT CYCLE
     Route: 048
  4. VITAMIN B12                        /00056201/ [Concomitant]
     Dosage: 100 MG, QD
     Route: 048
  5. FOLIC ACID [Concomitant]
     Dosage: 1 MG, 5 TIMES/D
     Route: 048
  6. FERROUS SULFATE TAB [Concomitant]
     Dosage: 325 MG, TID
     Route: 048
  7. PHOSLO [Concomitant]
     Dosage: 667 MG, TID AFTER MEAL
     Route: 048
  8. EPOGEN [Concomitant]
     Indication: ANAEMIA
     Dosage: 3 TIMES/WK

REACTIONS (2)
  - BLOOD PRESSURE DECREASED [None]
  - INFUSION SITE HAEMATOMA [None]
